FAERS Safety Report 6108198-4 (Version None)
Quarter: 2009Q1

REPORT INFORMATION
  Report Type: 
  Country: None (occurrence: None)
  Receive Date: 20090304
  Receipt Date: 20081008
  Transmission Date: 20090719
  Serious: Yes (Other)
  Sender: FDA-Public Use
  Company Number: US-001952

PATIENT
  Age: 49 Year
  Sex: Female

DRUGS (3)
  1. ISOVUE-370 [Suspect]
     Indication: COMPUTERISED TOMOGRAM
     Dosage: 20ML INTRAVENOUS (NOT OTHERWISE SPECIFIED)
     Route: 042
     Dates: start: 20081006, end: 20081006
  2. PREDNISONE TAB [Concomitant]
  3. BENADRYL [Concomitant]

REACTIONS (1)
  - ANAPHYLACTOID REACTION [None]
